FAERS Safety Report 17495181 (Version 1)
Quarter: 2020Q1

REPORT INFORMATION
  Report Type: Spontaneous
  Country: US (occurrence: US)
  Receive Date: 20200304
  Receipt Date: 20200304
  Transmission Date: 20200409
  Serious: Yes (Other)
  Sender: FDA-Public Use
  Company Number: US-BIODELIVERY SCIENCES INTERNATIONAL-2019BDSI0943

PATIENT
  Sex: Male

DRUGS (4)
  1. BUPRENORPHINE. [Suspect]
     Active Substance: BUPRENORPHINE
     Dosage: 2 FILMS IN THE MORNING, 2 FILMS AT NIGHT
     Route: 002
  2. BUPRENORPHINE. [Suspect]
     Active Substance: BUPRENORPHINE
     Dosage: 1 FILM IN THE MORNING, 1 FILM IN THE AFTERNOON, 1 FILM AT NIGHT
     Route: 002
     Dates: start: 201911, end: 201911
  3. BUPRENORPHINE. [Suspect]
     Active Substance: BUPRENORPHINE
     Dosage: 3 FILMS IN THE MORNING AND 3 FILMS AT NIGHT
     Route: 002
     Dates: start: 20191125
  4. BUPRENORPHINE. [Suspect]
     Active Substance: BUPRENORPHINE
     Indication: PAIN
     Route: 002
     Dates: start: 20191119, end: 201911

REACTIONS (11)
  - Drug withdrawal syndrome [Recovered/Resolved]
  - Presyncope [Unknown]
  - Product solubility abnormal [Unknown]
  - Delirium [Unknown]
  - Insomnia [Recovered/Resolved]
  - Intentional product use issue [Not Recovered/Not Resolved]
  - Incorrect route of product administration [Recovered/Resolved]
  - Product packaging difficult to open [Unknown]
  - Drug ineffective [Recovered/Resolved]
  - Pain [Recovered/Resolved]
  - Wrong technique in product usage process [Recovered/Resolved]

NARRATIVE: CASE EVENT DATE: 201911
